FAERS Safety Report 5788613-6 (Version None)
Quarter: 2008Q2

REPORT INFORMATION
  Report Type: 
  Country: None (occurrence: None)
  Receive Date: 20080626
  Receipt Date: 20080327
  Transmission Date: 20081010
  Serious: No
  Sender: FDA-Public Use
  Company Number: US-BAYER-200818663NA

PATIENT
  Age: 17 Year
  Sex: Female
  Weight: 82 kg

DRUGS (1)
  1. YASMIN [Suspect]
     Indication: DRUG USE FOR UNKNOWN INDICATION
     Route: 048
     Dates: start: 20060101, end: 20070101

REACTIONS (5)
  - ABDOMINAL PAIN [None]
  - MENORRHAGIA [None]
  - MIGRAINE [None]
  - PAIN IN EXTREMITY [None]
  - WEIGHT INCREASED [None]
